FAERS Safety Report 8775277 (Version 2)
Quarter: 2012Q4

REPORT INFORMATION
  Report Type: 
  Country: VE (occurrence: VE)
  Receive Date: 20120910
  Receipt Date: 20120917
  Transmission Date: 20130627
  Serious: Yes (Other)
  Sender: FDA-Public Use
  Company Number: VE-PFIZER INC-2011184794

PATIENT
  Age: 75 Year
  Sex: Male

DRUGS (5)
  1. LIPITOR [Suspect]
     Indication: MYOCARDIAL INFARCTION
     Dosage: 40 mg, 1x/day
     Route: 048
     Dates: start: 20080104
  2. LEXOTANIL [Concomitant]
     Dosage: UNK
     Route: 048
  3. LASIX [Concomitant]
     Dosage: UNK
     Route: 048
  4. OMEPRAZOL [Concomitant]
     Dosage: UNK
     Route: 048
  5. CONCOR [Concomitant]
     Dosage: 2.5 mg, UNK
     Route: 048

REACTIONS (1)
  - Pulmonary oedema [Not Recovered/Not Resolved]
